FAERS Safety Report 8515493-8 (Version None)
Quarter: 2012Q3

REPORT INFORMATION
  Report Type: 
  Country: None (occurrence: None)
  Receive Date: 20120717
  Receipt Date: 20120705
  Transmission Date: 20120928
  Serious: Yes (Hospitalization)
  Sender: FDA-Public Use
  Company Number: NL-CELGENEUS-114-20785-12020401

PATIENT
  Sex: Male

DRUGS (17)
  1. OXYCONTIN [Concomitant]
     Dosage: 20 MILLIGRAM
     Route: 048
  2. MELPHALAN HYDROCHLORIDE [Suspect]
     Dosage: 14 MILLIGRAM
     Route: 048
     Dates: start: 20120119, end: 20120122
  3. CARBASALAAT CALCIUM [Concomitant]
     Dosage: 100 MILLIGRAM
     Route: 048
  4. THALIDOMIDE [Suspect]
     Indication: MULTIPLE MYELOMA
     Dosage: 100 MILLIGRAM
     Route: 048
     Dates: start: 20120119, end: 20120129
  5. THALIDOMIDE [Suspect]
     Route: 048
     Dates: start: 20111123
  6. OXYCODONE HCL [Concomitant]
     Dosage: 15 MILLIGRAM
     Route: 048
     Dates: start: 20111206
  7. ACETAMINOPHEN [Concomitant]
     Indication: PAIN
     Dosage: 4000 MILLIGRAM
     Route: 048
  8. SIMVASTATIN [Concomitant]
     Dosage: 20 MILLIGRAM
     Route: 048
     Dates: start: 20111027
  9. PANTOPRAZOLE [Concomitant]
     Dosage: 40 MILLIGRAM
     Route: 048
  10. PREDNISONE [Suspect]
     Dosage: 160 MILLIGRAM
     Route: 048
     Dates: start: 20120119, end: 20120122
  11. VESICARE [Concomitant]
     Dosage: 10 MILLIGRAM
     Route: 065
  12. KLYX ENEMA [Concomitant]
     Route: 065
  13. PREDNISONE [Suspect]
     Indication: MULTIPLE MYELOMA
     Route: 048
     Dates: start: 20111123
  14. DICLOFENAC [Concomitant]
     Indication: PAIN
     Dosage: 200 MILLIGRAM
     Route: 048
     Dates: start: 20111202
  15. POLYETHYLENE GLYCOL [Concomitant]
     Dosage: 20 GRAM
     Route: 065
  16. THALIDOMIDE [Suspect]
     Route: 048
     Dates: start: 20120207
  17. MELPHALAN HYDROCHLORIDE [Suspect]
     Indication: MULTIPLE MYELOMA
     Route: 048
     Dates: start: 20111123

REACTIONS (2)
  - ANAEMIA [None]
  - ESCHERICHIA URINARY TRACT INFECTION [None]
